FAERS Safety Report 21338271 (Version 1)
Quarter: 2022Q3

REPORT INFORMATION
  Report Type: Spontaneous
  Country: CA (occurrence: None)
  Receive Date: 20220915
  Receipt Date: 20220915
  Transmission Date: 20221027
  Serious: Yes (Other)
  Sender: FDA-Public Use
  Company Number: CA-ROCHE-3179453

PATIENT
  Age: 83 Year
  Sex: Female
  Weight: 83 kg

DRUGS (1)
  1. PIRFENIDONE [Suspect]
     Active Substance: PIRFENIDONE
     Indication: Idiopathic pulmonary fibrosis
     Route: 048

REACTIONS (10)
  - Arthralgia [Unknown]
  - Cough [Unknown]
  - Eye disorder [Unknown]
  - Ocular hypertension [Unknown]
  - Pneumonia [Unknown]
  - Restrictive pulmonary disease [Unknown]
  - Sarcopenia [Unknown]
  - Sinus congestion [Unknown]
  - Upper-airway cough syndrome [Unknown]
  - Wheezing [Unknown]
